FAERS Safety Report 4861197-2 (Version None)
Quarter: 2005Q4

REPORT INFORMATION
  Report Type: 
  Country: None (occurrence: None)
  Receive Date: 20051216
  Receipt Date: 20051208
  Transmission Date: 20060501
  Serious: Yes (Other)
  Sender: FDA-Public Use
  Company Number: GBWYE218109DEC05

PATIENT
  Sex: Male

DRUGS (1)
  1. EFFEXOR [Suspect]
     Indication: SHOCK

REACTIONS (3)
  - EPILEPSY [None]
  - ONYCHOMADESIS [None]
  - SKIN EXFOLIATION [None]
